FAERS Safety Report 19969069 (Version 1)
Quarter: 2021Q4

REPORT INFORMATION
  Report Type: Spontaneous
  Country: US (occurrence: US)
  Receive Date: 20211019
  Receipt Date: 20211019
  Transmission Date: 20220304
  Serious: No
  Sender: FDA-Public Use
  Company Number: US-PFIZER INC-202101065361

PATIENT
  Age: 67 Year
  Sex: Male
  Weight: 130.63 kg

DRUGS (1)
  1. CHANTIX [Suspect]
     Active Substance: VARENICLINE TARTRATE
     Indication: Smoking cessation therapy
     Dosage: 1 MG, 2X/DAY (IN THE MORNING AND IN THE EVENING)
     Route: 048

REACTIONS (7)
  - Gastric disorder [Unknown]
  - Dizziness [Recovering/Resolving]
  - Diarrhoea [Recovering/Resolving]
  - Anger [Recovering/Resolving]
  - Depressed mood [Recovered/Resolved]
  - Nausea [Unknown]
  - Mood altered [Unknown]
